FAERS Safety Report 14188269 (Version 1)
Quarter: 2017Q4

REPORT INFORMATION
  Report Type: Spontaneous
  Country: US (occurrence: None)
  Receive Date: 20171113
  Receipt Date: 20171113
  Transmission Date: 20180321
  Serious: Yes (Other)
  Sender: FDA-Public Use
  Company Number: None

PATIENT
  Age: 63 Year
  Sex: Male
  Weight: 116.57 kg

DRUGS (2)
  1. PAROXETINE 40 MG APOTEX [Suspect]
     Active Substance: PAROXETINE
     Indication: DEPRESSION
     Route: 048
     Dates: start: 20170526
  2. PAROXETINE 40 MG MYLAN [Suspect]
     Active Substance: PAROXETINE
     Indication: DEPRESSION
     Route: 048
     Dates: start: 20151208, end: 20170905

REACTIONS (5)
  - Drug ineffective [None]
  - Product substitution issue [None]
  - Depression [None]
  - Insomnia [None]
  - Anger [None]

NARRATIVE: CASE EVENT DATE: 20160607
